FAERS Safety Report 4528336-4 (Version None)
Quarter: 2004Q4

REPORT INFORMATION
  Report Type: 
  Country: None (occurrence: None)
  Receive Date: 20041130
  Receipt Date: 20040812
  Transmission Date: 20050328
  Serious: No
  Sender: FDA-Public Use
  Company Number: WAES 0408USA01127

PATIENT
  Age: 70 Year
  Sex: Female

DRUGS (8)
  1. ZETIA [Suspect]
     Indication: BLOOD CHOLESTEROL INCREASED
     Dosage: 10 MG DAILY PO
     Route: 048
     Dates: start: 20040729, end: 20040807
  2. ATACAND [Concomitant]
  3. LIPITOR [Concomitant]
  4. NORVASC [Concomitant]
  5. SYNTHROID [Concomitant]
  6. TENORETIC 100 [Concomitant]
  7. TRICOR [Concomitant]
  8. SPIRONOLACTONE [Concomitant]

REACTIONS (2)
  - PRURITUS [None]
  - URTICARIA [None]
